FAERS Safety Report 10333986 (Version 2)
Quarter: 2014Q3

REPORT INFORMATION
  Report Type: Spontaneous
  Country: JP (occurrence: JP)
  Receive Date: 20140723
  Receipt Date: 20140902
  Transmission Date: 20150326
  Serious: Yes (Hospitalization)
  Sender: FDA-Public Use
  Company Number: JP-AMGEN-JPNSP2014054680

PATIENT
  Age: 78 Year
  Sex: Male
  Weight: 50 kg

DRUGS (13)
  1. DENOTAS [Concomitant]
     Active Substance: CALCIUM CARBONATE\CHOLECALCIFEROL\MAGNESIUM CARBONATE
     Indication: PROSTATE CANCER
     Dosage: 1 DF, BID
     Route: 048
     Dates: start: 20130812
  2. LANSOPRAZOLE. [Concomitant]
     Active Substance: LANSOPRAZOLE
     Dosage: UNK UNK, QD
     Route: 048
     Dates: start: 20130508
  3. RANMARK [Suspect]
     Active Substance: DENOSUMAB
     Indication: PROSTATE CANCER
     Dosage: 120 MG, QMO
     Route: 058
     Dates: start: 20121228, end: 20140328
  4. AMLODIPINE [Concomitant]
     Active Substance: AMLODIPINE BESYLATE
     Indication: HYPERTENSION
     Dosage: 5 MG, QD
     Route: 048
     Dates: start: 20130508
  5. LASIX [Concomitant]
     Active Substance: FUROSEMIDE
     Indication: RENAL FAILURE
     Dosage: 10 MG, QD
     Route: 048
     Dates: start: 20130508
  6. DETRUSITOL [Concomitant]
     Active Substance: TOLTERODINE TARTRATE
     Indication: PROSTATE CANCER
     Dosage: 4 MG, QD
     Route: 048
     Dates: start: 20120727
  7. ANYRUME [Concomitant]
     Active Substance: ACETAMINOPHEN
     Indication: PROSTATE CANCER
     Dosage: 600 MG, TID
     Route: 048
     Dates: start: 20131018
  8. ZOPICLONE [Concomitant]
     Active Substance: ZOPICLONE
     Dosage: 7.5 MG, QD
     Route: 048
     Dates: start: 20130508
  9. SLOW-K [Concomitant]
     Active Substance: POTASSIUM CHLORIDE
     Indication: RENAL FAILURE
     Dosage: 600 MG, TID
     Route: 048
     Dates: start: 20130508
  10. SENNOSIDE                          /00571901/ [Concomitant]
     Active Substance: SENNOSIDE A\SENNOSIDE B\SENNOSIDES
     Dosage: 24 MG, QD
     Route: 048
     Dates: start: 20130508
  11. VITAMINS NOS [Concomitant]
     Active Substance: VITAMINS
     Dosage: UNK UNK, TID
     Route: 048
     Dates: start: 20130626
  12. RINDERON                           /00008501/ [Concomitant]
     Indication: PROSTATE CANCER
     Dosage: 0.5 MG, QD
     Route: 048
     Dates: start: 20130129, end: 20140509
  13. LEUPLIN [Concomitant]
     Active Substance: LEUPROLIDE ACETATE
     Indication: PROSTATE CANCER
     Dosage: 11.25 MG, Q3MO
     Route: 058
     Dates: start: 19990531

REACTIONS (1)
  - Osteomyelitis [Recovering/Resolving]

NARRATIVE: CASE EVENT DATE: 20140328
